FAERS Safety Report 20353644 (Version 1)
Quarter: 2022Q1

REPORT INFORMATION
  Report Type: Spontaneous
  Country: US (occurrence: None)
  Receive Date: 20220120
  Receipt Date: 20220120
  Transmission Date: 20220423
  Serious: No
  Sender: FDA-Public Use
  Company Number: US-USWM, LLC-UWM202104-000034

PATIENT
  Age: 64 Year
  Sex: Female
  Weight: 53.07 kg

DRUGS (3)
  1. CORGARD [Suspect]
     Active Substance: NADOLOL
     Indication: Product used for unknown indication
  2. PFIZER-BIONTECH COVID-19 VACCINE [Suspect]
     Active Substance: TOZINAMERAN
     Indication: COVID-19 prophylaxis
     Dosage: NOT PROVIDED
     Dates: start: 20210406, end: 20210406
  3. LIPITOR [Concomitant]
     Active Substance: ATORVASTATIN CALCIUM
     Indication: Blood cholesterol abnormal

REACTIONS (6)
  - Malaise [Unknown]
  - Palpitations [Recovering/Resolving]
  - Tremor [Recovering/Resolving]
  - Pain in extremity [Unknown]
  - Micturition urgency [Unknown]
  - Fatigue [Unknown]

NARRATIVE: CASE EVENT DATE: 20210406
